FAERS Safety Report 7925243 (Version 3)
Quarter: 2017Q1

REPORT INFORMATION
  Report Type: Spontaneous
  Country: US (occurrence: US)
  Receive Date: 20110502
  Receipt Date: 20170103
  Transmission Date: 20170429
  Serious: No
  Sender: FDA-Public Use
  Company Number: US-ASTRAZENECA-2003UW09509

PATIENT
  Age: 57 Year
  Sex: Male
  Weight: 86.2 kg

DRUGS (5)
  1. NEXIUM [Suspect]
     Active Substance: ESOMEPRAZOLE MAGNESIUM
     Indication: GASTROOESOPHAGEAL REFLUX DISEASE
     Route: 048
     Dates: start: 2003
  2. NEXIUM [Suspect]
     Active Substance: ESOMEPRAZOLE MAGNESIUM
     Indication: GASTROOESOPHAGEAL REFLUX DISEASE
     Route: 048
  3. MULTIVITAMIN [Concomitant]
     Active Substance: VITAMINS
     Dosage: 30 YEARS AGO, DOSE 0NE TABLET DAILY
  4. NEXIUM [Suspect]
     Active Substance: ESOMEPRAZOLE MAGNESIUM
     Indication: GASTROOESOPHAGEAL REFLUX DISEASE
     Route: 048
     Dates: start: 200211
  5. FISH OIL [Concomitant]
     Active Substance: FISH OIL
     Dosage: 30 YEARS AGO

REACTIONS (11)
  - Vomiting [Unknown]
  - Dyspepsia [Unknown]
  - Hiatus hernia [Unknown]
  - Abdominal pain [Unknown]
  - Urticaria [Unknown]
  - Gastroenteritis viral [Unknown]
  - Drug dose omission [Unknown]
  - Hyperphagia [Unknown]
  - Diarrhoea [Unknown]
  - Off label use [Unknown]
  - Intentional product misuse [Unknown]

NARRATIVE: CASE EVENT DATE: 20030101
